FAERS Safety Report 14475059 (Version 1)
Quarter: 2018Q1

REPORT INFORMATION
  Report Type: Spontaneous
  Country: US (occurrence: US)
  Receive Date: 20180131
  Receipt Date: 20180131
  Transmission Date: 20180509
  Serious: Yes (Hospitalization, Other)
  Sender: FDA-Public Use
  Company Number: None

PATIENT
  Sex: Female
  Weight: 54 kg

DRUGS (4)
  1. ESTER OF ROSIN [Suspect]
     Active Substance: ROSIN
     Indication: NUTRITIONAL SUPPLEMENTATION
     Dosage: ?          OTHER ROUTE:2% OR LESS INGREDIENT?
  2. IBUPROFEN. [Concomitant]
     Active Substance: IBUPROFEN
  3. LIDOCAIN [Suspect]
     Active Substance: LIDOCAINE
     Indication: PAIN
     Dosage: ?          OTHER ROUTE:ORAL TOPICAL?
     Route: 048
  4. BENADRYL [Concomitant]
     Active Substance: DIPHENHYDRAMINE HYDROCHLORIDE

REACTIONS (1)
  - Anaphylactic reaction [None]

NARRATIVE: CASE EVENT DATE: 20160508
